FAERS Safety Report 15608475 (Version 2)
Quarter: 2018Q4

REPORT INFORMATION
  Report Type: Report from Study
  Country: KR (occurrence: KR)
  Receive Date: 20181112
  Receipt Date: 20181119
  Transmission Date: 20190205
  Serious: Yes (Hospitalization)
  Sender: FDA-Public Use
  Company Number: KR-ELI_LILLY_AND_COMPANY-KR201811002715

PATIENT
  Age: 64 Year
  Sex: Male
  Weight: 73 kg

DRUGS (2)
  1. OLARATUMAB [Suspect]
     Active Substance: OLARATUMAB
     Indication: SYNOVIAL SARCOMA
     Dosage: 15 MG/KG, 21 DAY CYCLE (DAY 1,8)
     Route: 042
     Dates: start: 20180910, end: 20181026
  2. DOXORUBICIN [Concomitant]
     Active Substance: DOXORUBICIN
     Indication: SYNOVIAL SARCOMA
     Dosage: 75 MG/M2, 21 DAY CYCLE
     Route: 042
     Dates: start: 20180910, end: 20181026

REACTIONS (1)
  - Febrile neutropenia [Recovered/Resolved]

NARRATIVE: CASE EVENT DATE: 20181105
